FAERS Safety Report 8032493-5 (Version None)
Quarter: 2011Q4

REPORT INFORMATION
  Report Type: 
  Country: None (occurrence: None)
  Receive Date: 20111202
  Receipt Date: 20110808
  Transmission Date: 20120403
  Serious: Yes (Other)
  Sender: FDA-Public Use
  Company Number: PHHY2011US68629

PATIENT
  Age: 35 Year
  Sex: Male

DRUGS (4)
  1. FANAPT [Suspect]
     Indication: BIPOLAR DISORDER
     Dosage: 1 MG, BID, ORAL
     Route: 048
     Dates: start: 20110722, end: 20110730
  2. FANAPT [Suspect]
     Indication: PSYCHOTIC DISORDER
     Dosage: 1 MG, BID, ORAL
     Route: 048
     Dates: start: 20110722, end: 20110730
  3. XANAX [Concomitant]
  4. DEPAKOTE [Concomitant]

REACTIONS (1)
  - TACHYCARDIA [None]
